FAERS Safety Report 18639614 (Version 1)
Quarter: 2020Q4

REPORT INFORMATION
  Report Type: Spontaneous
  Country: US (occurrence: US)
  Receive Date: 20201220
  Receipt Date: 20201220
  Transmission Date: 20210114
  Serious: No
  Sender: FDA-Public Use
  Company Number: US-JNJFOC-20201227922

PATIENT
  Age: 66 Year
  Sex: Male
  Weight: 93.98 kg

DRUGS (1)
  1. ZYRTEC [Suspect]
     Active Substance: CETIRIZINE HYDROCHLORIDE
     Indication: MULTIPLE ALLERGIES
     Dosage: 1 TABLET ONCE A DAY / DATE OF LAST DRUG ADMIN: 11 - DEC -2020
     Route: 048
     Dates: start: 20201127

REACTIONS (1)
  - Malaise [Unknown]
